FAERS Safety Report 7924899-7 (Version None)
Quarter: 2011Q4

REPORT INFORMATION
  Report Type: 
  Country: None (occurrence: None)
  Receive Date: 20111118
  Receipt Date: 20110329
  Transmission Date: 20120403
  Serious: No
  Sender: FDA-Public Use
  Company Number: US-AMGEN-USASP2011016848

PATIENT
  Age: 49 Year
  Sex: Female

DRUGS (1)
  1. ENBREL [Suspect]
     Indication: ANKYLOSING SPONDYLITIS
     Dosage: 50 MG, QWK
     Dates: start: 20110301

REACTIONS (12)
  - HYPERAESTHESIA [None]
  - PAIN [None]
  - INJECTION SITE HAEMATOMA [None]
  - INJECTION SITE WARMTH [None]
  - INJECTION SITE SWELLING [None]
  - ABDOMINAL DISTENSION [None]
  - THERAPEUTIC RESPONSE DECREASED [None]
  - NAUSEA [None]
  - FEELING HOT [None]
  - INJECTION SITE MASS [None]
  - INJECTION SITE ERYTHEMA [None]
  - PETECHIAE [None]
